FAERS Safety Report 4686964-X (Version None)
Quarter: 2005Q2

REPORT INFORMATION
  Report Type: 
  Country: None (occurrence: None)
  Receive Date: 20050608
  Receipt Date: 20050523
  Transmission Date: 20051028
  Serious: Yes (Death)
  Sender: FDA-Public Use
  Company Number: B0382390A

PATIENT
  Age: 60 Year
  Sex: Male

DRUGS (8)
  1. ALKERAN [Suspect]
     Indication: MULTIPLE MYELOMA
     Dosage: 200 MG/M2 / INTRVENOUS
     Route: 042
  2. FILGRASTIM [Concomitant]
  3. CYCLOPHOSPHAMIDE [Concomitant]
  4. CIPROFLOXACIN HCL [Concomitant]
  5. ACYCLOVIR [Concomitant]
  6. NYSTATIN [Concomitant]
  7. SULPHAMETHOXAZOLE [Concomitant]
  8. INTERFERON ALFA-1B [Concomitant]

REACTIONS (8)
  - GASTROINTESTINAL HAEMORRHAGE [None]
  - HAEMATEMESIS [None]
  - HAEMODIALYSIS [None]
  - MELAENA [None]
  - MUCOSAL INFLAMMATION [None]
  - MULTI-ORGAN FAILURE [None]
  - PNEUMONIA [None]
  - POLYNEUROPATHY [None]
